FAERS Safety Report 25890858 (Version 1)
Quarter: 2025Q4

REPORT INFORMATION
  Report Type: Spontaneous
  Country: US (occurrence: US)
  Receive Date: 20251007
  Receipt Date: 20251007
  Transmission Date: 20260119
  Serious: Yes (Other)
  Sender: SANOFI AVENTIS
  Company Number: US-SA-2025SA294798

PATIENT
  Age: 81 Year
  Sex: Male

DRUGS (1)
  1. DUPIXENT [Suspect]
     Active Substance: DUPILUMAB
     Indication: Dermatitis atopic
     Dosage: 300 MG, QOW
     Route: 058

REACTIONS (4)
  - Retinal artery occlusion [Unknown]
  - Blindness unilateral [Not Recovered/Not Resolved]
  - Stress [Unknown]
  - Rash [Unknown]

NARRATIVE: CASE EVENT DATE: 20250101
